FAERS Safety Report 9058647 (Version 3)
Quarter: 2013Q2

REPORT INFORMATION
  Report Type: Report from Study
  Country: DE (occurrence: DE)
  Receive Date: 20130204
  Receipt Date: 20130520
  Transmission Date: 20140414
  Serious: Yes (Hospitalization)
  Sender: FDA-Public Use
  Company Number: DE-UCBSA-077254

PATIENT
  Age: 40 Year
  Sex: Female

DRUGS (12)
  1. VIMPAT [Suspect]
     Indication: PARTIAL SEIZURES
     Dosage: 50 MG/DAY
     Dates: start: 20090122, end: 2009
  2. VIMPAT [Suspect]
     Indication: GRAND MAL CONVULSION
     Dosage: 50 MG/DAY
     Dates: start: 20090122, end: 2009
  3. VIMPAT [Suspect]
     Indication: COMPLEX PARTIAL SEIZURES
     Dosage: 50 MG/DAY
     Dates: start: 20090122, end: 2009
  4. VIMPAT [Suspect]
     Indication: PARTIAL SEIZURES
     Dosage: 200 MG/DAY
     Dates: start: 2009, end: 2009
  5. VIMPAT [Suspect]
     Indication: GRAND MAL CONVULSION
     Dosage: 200 MG/DAY
     Dates: start: 2009, end: 2009
  6. VIMPAT [Suspect]
     Indication: COMPLEX PARTIAL SEIZURES
     Dosage: 200 MG/DAY
     Dates: start: 2009, end: 2009
  7. VIMPAT [Suspect]
     Indication: PARTIAL SEIZURES
     Dosage: 100 MG + 150 MG
     Route: 048
     Dates: start: 2009, end: 20090514
  8. VIMPAT [Suspect]
     Indication: GRAND MAL CONVULSION
     Dosage: 100 MG + 150 MG
     Route: 048
     Dates: start: 2009, end: 20090514
  9. VIMPAT [Suspect]
     Indication: COMPLEX PARTIAL SEIZURES
     Dosage: 100 MG + 150 MG
     Route: 048
     Dates: start: 2009, end: 20090514
  10. LEVETIRACETAM [Concomitant]
     Indication: EPILEPSY
     Dosage: NO OF DOSES RECEIVED :2
     Route: 048
  11. OXCARBAZEPINE [Concomitant]
     Indication: EPILEPSY
     Route: 048
  12. ZONISAMIDE [Concomitant]
     Indication: EPILEPSY
     Route: 048

REACTIONS (4)
  - Complex partial seizures [Recovered/Resolved]
  - Simple partial seizures [Recovered/Resolved]
  - Grand mal convulsion [Recovered/Resolved]
  - Drug ineffective [Recovered/Resolved]
